FAERS Safety Report 7034679-5 (Version None)
Quarter: 2010Q4

REPORT INFORMATION
  Report Type: 
  Country: None (occurrence: None)
  Receive Date: 20101008
  Receipt Date: 20100924
  Transmission Date: 20110411
  Serious: Yes (Hospitalization, Other)
  Sender: FDA-Public Use
  Company Number: PHHY2010JP64672

PATIENT
  Age: 77 Year
  Sex: Male

DRUGS (3)
  1. ZOMETA [Suspect]
     Indication: BONE LESION
     Dosage: 4 MG, UNK
     Route: 041
     Dates: start: 20100501, end: 20100801
  2. RADIOTHERAPY [Concomitant]
     Dosage: UNK
     Dates: start: 20100801
  3. SORAFENIB TOSILATE [Concomitant]
     Dosage: 400 MG, UNK
     Route: 048

REACTIONS (8)
  - AZOTAEMIA [None]
  - CELL DEATH [None]
  - DIALYSIS [None]
  - MALAISE [None]
  - METASTASES TO BONE [None]
  - NAUSEA [None]
  - RENAL FAILURE ACUTE [None]
  - RENAL IMPAIRMENT [None]
